FAERS Safety Report 19638921 (Version 1)
Quarter: 2021Q3

REPORT INFORMATION
  Report Type: Spontaneous
  Country: US (occurrence: US)
  Receive Date: 20210729
  Receipt Date: 20210729
  Transmission Date: 20211014
  Serious: No
  Sender: FDA-Public Use
  Company Number: US-SA-2021SA244852

PATIENT
  Age: 12 Year
  Sex: Female

DRUGS (1)
  1. DUPIXENT [Suspect]
     Active Substance: DUPILUMAB
     Indication: DERMATITIS
     Dosage: 400 MG, 1X
     Route: 058
     Dates: start: 20210722, end: 20210722

REACTIONS (4)
  - Injection site swelling [Unknown]
  - Injection site pain [Unknown]
  - Wrong technique in device usage process [Unknown]
  - Product use in unapproved indication [Unknown]

NARRATIVE: CASE EVENT DATE: 20210722
